FAERS Safety Report 11619462 (Version 1)
Quarter: 2015Q4

REPORT INFORMATION
  Report Type: Spontaneous
  Country: CA (occurrence: CA)
  Receive Date: 20151012
  Receipt Date: 20151012
  Transmission Date: 20160304
  Serious: Yes (Life-Threatening, Other)
  Sender: FDA-Public Use
  Company Number: CA-FRI-1000078303

PATIENT
  Sex: Female

DRUGS (3)
  1. CELEXA [Suspect]
     Active Substance: CITALOPRAM HYDROBROMIDE
     Indication: ANXIETY
     Dosage: 10 MG
     Dates: start: 1998
  2. CELEXA [Suspect]
     Active Substance: CITALOPRAM HYDROBROMIDE
     Indication: DEPRESSION
     Dosage: 40 MG
  3. CELEXA [Suspect]
     Active Substance: CITALOPRAM HYDROBROMIDE
     Dates: end: 2011

REACTIONS (20)
  - Amnesia [Not Recovered/Not Resolved]
  - Headache [Unknown]
  - Seizure [Unknown]
  - Decreased appetite [Unknown]
  - Pain in extremity [Unknown]
  - Dizziness [Recovering/Resolving]
  - Food allergy [Recovered/Resolved]
  - Peripheral swelling [Unknown]
  - Lactose intolerance [Not Recovered/Not Resolved]
  - Feelings of worthlessness [Unknown]
  - Suicidal ideation [Unknown]
  - Anxiety [Unknown]
  - Weight increased [Not Recovered/Not Resolved]
  - Depression [Unknown]
  - Reading disorder [Unknown]
  - Suicide attempt [Recovered/Resolved]
  - Food allergy [Unknown]
  - Decreased interest [Unknown]
  - Fluid retention [Unknown]
  - Dysphemia [Unknown]

NARRATIVE: CASE EVENT DATE: 2010
